FAERS Safety Report 17316013 (Version 2)
Quarter: 2020Q1

REPORT INFORMATION
  Report Type: Spontaneous
  Country: NL (occurrence: NL)
  Receive Date: 20200124
  Receipt Date: 20200131
  Transmission Date: 20200409
  Serious: Yes (Other)
  Sender: FDA-Public Use
  Company Number: NL-JNJFOC-20190540841

PATIENT
  Age: 2 Decade
  Sex: Female
  Weight: 60.1 kg

DRUGS (7)
  1. REMICADE [Suspect]
     Active Substance: INFLIXIMAB
     Route: 042
     Dates: start: 20160828, end: 20170529
  2. REMICADE [Suspect]
     Active Substance: INFLIXIMAB
     Indication: CROHN^S DISEASE
     Dosage: 5 MG/KG
     Route: 042
     Dates: start: 20140226
  3. REMICADE [Suspect]
     Active Substance: INFLIXIMAB
     Route: 042
     Dates: start: 20141127, end: 201506
  4. LANVIS [Concomitant]
     Active Substance: THIOGUANINE ANHYDROUS
     Route: 065
     Dates: start: 201410, end: 201501
  5. TIOGUANINE [Concomitant]
     Active Substance: THIOGUANINE ANHYDROUS
     Indication: CROHN^S DISEASE
     Route: 065
     Dates: start: 20141001, end: 20150101
  6. EUGYNON                            /00022701/ [Concomitant]
     Indication: CONTRACEPTION
     Dosage: (MTCROGYNON 30) TABLET   30/150 MICROGRAM
     Route: 065
  7. REMICADE [Suspect]
     Active Substance: INFLIXIMAB
     Route: 042
     Dates: start: 20150305

REACTIONS (5)
  - Off label use [Unknown]
  - Product use issue [Unknown]
  - Intestinal ulcer [Unknown]
  - Infusion related reaction [Not Recovered/Not Resolved]
  - Psoriasis [Not Recovered/Not Resolved]

NARRATIVE: CASE EVENT DATE: 201408
